FAERS Safety Report 25425231 (Version 1)
Quarter: 2025Q2

REPORT INFORMATION
  Report Type: Spontaneous
  Country: BR (occurrence: BR)
  Receive Date: 20250611
  Receipt Date: 20250611
  Transmission Date: 20250716
  Serious: Yes (Other)
  Sender: Alora Pharma
  Company Number: BR-VERTICAL PHARMACEUTICALS-2025ALO02275

PATIENT
  Age: 76 Year
  Sex: Female
  Weight: 54 kg

DRUGS (7)
  1. ESTRADIOL [Suspect]
     Active Substance: ESTRADIOL
     Indication: Menopausal symptoms
     Route: 061
  2. DPREV [Concomitant]
  3. BEZAFIBRATE [Concomitant]
     Active Substance: BEZAFIBRATE
  4. TIZANIDINE [Concomitant]
     Active Substance: TIZANIDINE
  5. LORATADINE [Concomitant]
     Active Substance: LORATADINE
  6. LOSARTAN POTASSIUM [Concomitant]
     Active Substance: LOSARTAN POTASSIUM
  7. EZETIMIBE [Concomitant]
     Active Substance: EZETIMIBE

REACTIONS (12)
  - Drug dependence [Unknown]
  - Hypothyroidism [Unknown]
  - Fall [Unknown]
  - Joint injury [Unknown]
  - Diarrhoea [Unknown]
  - Dehydration [Unknown]
  - Vulvovaginal dryness [Unknown]
  - Cystitis [Recovered/Resolved]
  - Nausea [Unknown]
  - Vomiting [Unknown]
  - Asthenia [Unknown]
  - Therapeutic response unexpected [Unknown]

NARRATIVE: CASE EVENT DATE: 20150101
